FAERS Safety Report 10155508 (Version 1)
Quarter: 2014Q2

REPORT INFORMATION
  Report Type: Spontaneous
  Country: US (occurrence: US)
  Receive Date: 20140506
  Receipt Date: 20140506
  Transmission Date: 20141212
  Serious: Yes (Other)
  Sender: FDA-Public Use
  Company Number: US-BAYER-2014-063312

PATIENT
  Age: 61 Year
  Sex: Female

DRUGS (1)
  1. GADAVIST [Suspect]
     Indication: NUCLEAR MAGNETIC RESONANCE IMAGING
     Dosage: 10 CC
     Route: 042

REACTIONS (5)
  - Throat tightness [Unknown]
  - Pharyngeal oedema [Unknown]
  - Swollen tongue [Unknown]
  - Tongue disorder [Unknown]
  - Cough [Unknown]
